FAERS Safety Report 8231679-4 (Version None)
Quarter: 2012Q1

REPORT INFORMATION
  Report Type: 
  Country: None (occurrence: None)
  Receive Date: 20120323
  Receipt Date: 20120315
  Transmission Date: 20120608
  Serious: Yes (Hospitalization, Disabling)
  Sender: FDA-Public Use
  Company Number: FR-MPIJNJ-2011-04910

PATIENT

DRUGS (14)
  1. XATRAL                             /00975301/ [Concomitant]
     Dosage: 10 MG, UNK
     Route: 048
     Dates: start: 20110726
  2. OXYCONTIN [Concomitant]
     Dosage: UNK
     Route: 048
     Dates: start: 20110803
  3. VELCADE [Suspect]
     Indication: MULTIPLE MYELOMA
     Dosage: 2.6 MG, UNK
     Route: 065
     Dates: start: 20110801, end: 20110922
  4. DEXAMETHASONE [Suspect]
     Indication: MULTIPLE MYELOMA
     Dosage: 20 MG, UNK
     Route: 065
     Dates: start: 20110801, end: 20110923
  5. LOVENOX [Concomitant]
     Indication: PROPHYLAXIS
     Dosage: 0.4 ML, UNK
     Route: 058
     Dates: start: 20110720
  6. ZELITREX                           /01269701/ [Concomitant]
     Indication: PROPHYLAXIS
     Dosage: 1000 MG, UNK
     Route: 048
     Dates: start: 20110801
  7. LEDERFOLIN                         /00566702/ [Concomitant]
     Indication: PROPHYLAXIS
     Dosage: 50 MG, UNK
     Route: 048
     Dates: start: 20110801
  8. REVLIMID [Suspect]
     Indication: MULTIPLE MYELOMA
     Dosage: 25 MG, UNK
     Route: 065
     Dates: start: 20110801, end: 20110925
  9. NEXIUM [Concomitant]
     Indication: PROPHYLAXIS
     Dosage: 20 MG, UNK
     Route: 048
     Dates: start: 20110720
  10. CYCLOPHOSPHAMIDE [Suspect]
     Indication: MULTIPLE MYELOMA
     Route: 065
  11. NEORECORMON [Concomitant]
     Indication: ANAEMIA
     Dosage: UNK
     Route: 058
     Dates: start: 20110805
  12. BACTRIM [Concomitant]
     Indication: PROPHYLAXIS
     Dosage: UNK
     Route: 048
     Dates: start: 20110801
  13. POLYETHYLENE GLYCOL [Concomitant]
     Indication: CONSTIPATION
     Dosage: UNK
     Route: 048
     Dates: start: 20110720
  14. NICARDIPINE HYDROCHLORIDE [Concomitant]
     Indication: HYPERTENSION
     Dosage: 50 MG, UNK
     Route: 048
     Dates: start: 20110720

REACTIONS (2)
  - COLITIS [None]
  - LUNG DISORDER [None]
